FAERS Safety Report 6136446-3 (Version None)
Quarter: 2009Q1

REPORT INFORMATION
  Report Type: 
  Country: None (occurrence: None)
  Receive Date: 20090330
  Receipt Date: 20090324
  Transmission Date: 20090719
  Serious: Yes (Other)
  Sender: FDA-Public Use
  Company Number: CA-AMGEN-QUU338694

PATIENT
  Sex: Female

DRUGS (4)
  1. NEULASTA [Suspect]
     Indication: CHEMOTHERAPY
     Route: 058
     Dates: start: 20090311
  2. DOCETAXEL [Concomitant]
     Dates: start: 20090310
  3. DOXORUBICIN HCL [Concomitant]
     Dates: start: 20090310
  4. CYCLOPHOSPHAMIDE [Concomitant]
     Dates: start: 20090310

REACTIONS (7)
  - ABDOMINAL PAIN UPPER [None]
  - DIZZINESS [None]
  - HOT FLUSH [None]
  - HYPOTENSION [None]
  - MUSCLE SPASMS [None]
  - PALPITATIONS [None]
  - SENSATION OF FOREIGN BODY [None]
